FAERS Safety Report 6634821-1 (Version None)
Quarter: 2010Q1

REPORT INFORMATION
  Report Type: 
  Country: None (occurrence: None)
  Receive Date: 20100315
  Receipt Date: 20100304
  Transmission Date: 20100710
  Serious: Yes (Hospitalization, Disabling, Other)
  Sender: FDA-Public Use
  Company Number: US-MERCK-0906USA01734

PATIENT
  Age: 76 Year
  Sex: Female
  Weight: 50 kg

DRUGS (5)
  1. FOSAMAX [Suspect]
     Indication: OSTEOPOROSIS
     Route: 048
     Dates: start: 20040801, end: 20070601
  2. FOSAMAX [Suspect]
     Route: 048
     Dates: start: 20020901
  3. DIOVAN [Concomitant]
     Route: 065
     Dates: start: 20031006, end: 20070620
  4. ACETAMINOPHEN AND PROPOXYPHENE NAPSYLATE [Concomitant]
     Route: 065
     Dates: start: 20030131, end: 20070104
  5. LEXAPRO [Concomitant]
     Route: 065
     Dates: start: 20031006, end: 20060414

REACTIONS (39)
  - ACUTE MYOCARDIAL INFARCTION [None]
  - AMNESIA [None]
  - ANAEMIA [None]
  - ATRIAL FIBRILLATION [None]
  - ATRIAL SEPTAL DEFECT [None]
  - BONE DENSITY DECREASED [None]
  - BREAST MASS [None]
  - CARDIAC FAILURE CONGESTIVE [None]
  - CARDIOMEGALY [None]
  - CHOLECYSTITIS [None]
  - CONSTIPATION [None]
  - CORONARY ARTERY DISEASE [None]
  - DENTAL CARIES [None]
  - DEPRESSION [None]
  - EJECTION FRACTION DECREASED [None]
  - HIP FRACTURE [None]
  - HYPERLIPIDAEMIA [None]
  - HYPERTENSION [None]
  - HYPOKALAEMIA [None]
  - HYPONATRAEMIA [None]
  - INCISION SITE OEDEMA [None]
  - INSOMNIA [None]
  - ISCHAEMIC CARDIOMYOPATHY [None]
  - LUMBAR SPINAL STENOSIS [None]
  - MASS [None]
  - MITRAL VALVE INCOMPETENCE [None]
  - OEDEMA [None]
  - OSTEOARTHRITIS [None]
  - OSTEONECROSIS [None]
  - PULMONARY HYPERTENSION [None]
  - RHEUMATOID NODULE [None]
  - SPINAL COMPRESSION FRACTURE [None]
  - SQUAMOUS CELL CARCINOMA [None]
  - THYROID DISORDER [None]
  - TOOTHACHE [None]
  - TRICUSPID VALVE INCOMPETENCE [None]
  - URINARY TRACT INFECTION [None]
  - VENTRICULAR DYSFUNCTION [None]
  - VISION BLURRED [None]
